FAERS Safety Report 24529137 (Version 4)
Quarter: 2024Q4

REPORT INFORMATION
  Report Type: Spontaneous
  Country: BR (occurrence: BR)
  Receive Date: 20241021
  Receipt Date: 20241115
  Transmission Date: 20250114
  Serious: Yes (Death, Other)
  Sender: PURDUE
  Company Number: BR-NAPPMUNDI-GBR-2024-0120499

PATIENT
  Age: 52 Year
  Sex: Female
  Weight: 75 kg

DRUGS (2)
  1. BUPRENORPHINE [Suspect]
     Active Substance: BUPRENORPHINE
     Indication: Cancer pain
     Dosage: 10 MILLIGRAM, WEEKLY
     Route: 062
     Dates: start: 202406, end: 20240929
  2. ABEMACICLIB [Concomitant]
     Active Substance: ABEMACICLIB
     Indication: Neoplasm malignant
     Dosage: UNK, BID
     Route: 048

REACTIONS (3)
  - Metastases to bone [Fatal]
  - Metastases to liver [Fatal]
  - Breast cancer metastatic [Fatal]
